FAERS Safety Report 8251061-3 (Version None)
Quarter: 2012Q2

REPORT INFORMATION
  Report Type: 
  Country: None (occurrence: None)
  Receive Date: 20120402
  Receipt Date: 20120326
  Transmission Date: 20120825
  Serious: Yes (Hospitalization, Other)
  Sender: FDA-Public Use
  Company Number: FR-BAYER-2012-009989

PATIENT
  Age: 40 Year
  Sex: Female
  Weight: 63 kg

DRUGS (1)
  1. MIRENA [Suspect]
     Dosage: 20 MCG/24HR, CONT
     Route: 015
     Dates: start: 20120130, end: 20120204

REACTIONS (13)
  - NERVOUSNESS [None]
  - MENORRHAGIA [None]
  - PELVIC PAIN [None]
  - WEIGHT INCREASED [None]
  - NAUSEA [None]
  - ABDOMINAL PAIN [None]
  - PRESYNCOPE [None]
  - VERTIGO [None]
  - FORMICATION [None]
  - DIZZINESS [None]
  - MUSCULAR WEAKNESS [None]
  - ABDOMINAL DISTENSION [None]
  - JOINT SWELLING [None]
